FAERS Safety Report 17347066 (Version 1)
Quarter: 2020Q1

REPORT INFORMATION
  Report Type: Report from Study
  Country: FR (occurrence: FR)
  Receive Date: 20200130
  Receipt Date: 20200130
  Transmission Date: 20200409
  Serious: Yes (Other)
  Sender: FDA-Public Use
  Company Number: FR-SUN PHARMACEUTICAL INDUSTRIES LTD-2019R1-209124

PATIENT
  Age: 54 Year
  Sex: Male

DRUGS (15)
  1. BUPRENORPHINE. [Suspect]
     Active Substance: BUPRENORPHINE
     Indication: PRODUCT USED FOR UNKNOWN INDICATION
     Dosage: UNK
     Route: 045
  2. MORPHINE [Suspect]
     Active Substance: MORPHINE
     Dosage: MORPHINE BY INTRANASAL AND INTRAVENOUS ROUTE (50 MG EVERY 15 DAYS)
     Route: 042
  3. AMPHETAMINE [Suspect]
     Active Substance: AMPHETAMINE
     Indication: PRODUCT USED FOR UNKNOWN INDICATION
     Dosage: SNORTED AMPHETAMINES (THAT HE HAD USED FOR A 10-YEAR PERIOD)
     Route: 045
     Dates: start: 1981
  4. BUPRENORPHINE. [Suspect]
     Active Substance: BUPRENORPHINE
     Indication: PRODUCT USED FOR UNKNOWN INDICATION
     Dosage: INJECTED BUPRENORPHINE
     Route: 051
  5. COCAINE [Suspect]
     Active Substance: COCAINE
     Indication: PRODUCT USED FOR UNKNOWN INDICATION
     Dosage: INTRANASAL AND INTRAVENOUS ROUTE (1 TO 2 G 3 TIMES A WEEK)
     Route: 045
  6. HEROIN [Suspect]
     Active Substance: DIAMORPHINE
     Indication: PRODUCT USED FOR UNKNOWN INDICATION
     Dosage: (INTRANASAL ROUTE)
     Route: 045
  7. COCAINE [Suspect]
     Active Substance: COCAINE
     Indication: PRODUCT USED FOR UNKNOWN INDICATION
     Dosage: 2 GRAM, 3/WEEK (1-2G, Q3W)
     Route: 006
  8. COCAINE [Suspect]
     Active Substance: COCAINE
     Dosage: 2 GRAM, 3/WEEK  (1-2G, Q3W)
     Route: 042
  9. TABAC (POUDRE DE) [Suspect]
     Active Substance: TOBACCO LEAF
     Dosage: UNK
     Route: 055
  10. MORPHINE [Suspect]
     Active Substance: MORPHINE
     Dosage: MORPHINE BY PARENTERAL ROUTE (50 MG EVERY 15 DAYS)
     Route: 051
  11. BROMAZEPAM [Suspect]
     Active Substance: BROMAZEPAM
     Indication: PRODUCT USED FOR UNKNOWN INDICATION
     Dosage: UNK
     Route: 065
     Dates: start: 1981
  12. CLONAZEPAM. [Suspect]
     Active Substance: CLONAZEPAM
     Indication: PRODUCT USED FOR UNKNOWN INDICATION
     Dosage: UNK
     Route: 065
  13. ALCOHOL. [Suspect]
     Active Substance: ALCOHOL
     Indication: PRODUCT USED FOR UNKNOWN INDICATION
     Dosage: 22 UA PER DAY
     Route: 048
  14. MORPHINE [Suspect]
     Active Substance: MORPHINE
     Indication: PRODUCT USED FOR UNKNOWN INDICATION
     Dosage: MORPHINE BY INTRANASAL AND INTRAVENOUS ROUTE (50 MG EVERY 15 DAYS)
     Route: 045
  15. COCAINE [Suspect]
     Active Substance: COCAINE
     Dosage: INTRANASAL AND INTRAVENOUS ROUTE (1 TO 2 G 3 TIMES A WEEK)
     Route: 042

REACTIONS (4)
  - Nasal septum deviation [Unknown]
  - Intentional product use issue [Unknown]
  - Cluster headache [Not Recovered/Not Resolved]
  - Substance abuse [Not Recovered/Not Resolved]

NARRATIVE: CASE EVENT DATE: 1981
